FAERS Safety Report 9466036 (Version 1)
Quarter: 2013Q3

REPORT INFORMATION
  Report Type: Spontaneous
  Country: GB (occurrence: GB)
  Receive Date: 20130820
  Receipt Date: 20130820
  Transmission Date: 20140515
  Serious: Yes (Hospitalization)
  Sender: FDA-Public Use
  Company Number: GB-ASTRAZENECA-2013SE62816

PATIENT
  Age: 72 Year
  Sex: Male
  Weight: 53 kg

DRUGS (16)
  1. TICAGRELOR [Suspect]
     Route: 048
     Dates: start: 20130507, end: 20130722
  2. ASPIRIN [Suspect]
     Route: 048
     Dates: start: 2010, end: 20130722
  3. CLOPIDOGREL [Suspect]
     Route: 048
     Dates: start: 2010, end: 20130628
  4. ATORVASTATIN [Concomitant]
  5. CARBOCISTEINE [Concomitant]
  6. CARVEDILOL [Concomitant]
  7. GABAPENTIN [Concomitant]
  8. GTN [Concomitant]
  9. ISOSORBIDE MONONITRATE [Concomitant]
  10. LANSOPRAZOLE [Concomitant]
  11. PARACETAMOL [Concomitant]
  12. QUININE SULPHATE [Concomitant]
  13. RAMIPRIL [Concomitant]
  14. SALBUTAMOL [Concomitant]
  15. SYMBICORT [Concomitant]
  16. TIOTROPIUM [Concomitant]

REACTIONS (4)
  - Haemoglobin decreased [Recovering/Resolving]
  - Blood urine present [Recovering/Resolving]
  - Rectal haemorrhage [Recovering/Resolving]
  - Haematemesis [Recovering/Resolving]
